FAERS Safety Report 8188532-4 (Version None)
Quarter: 2012Q1

REPORT INFORMATION
  Report Type: 
  Country: None (occurrence: None)
  Receive Date: 20120306
  Receipt Date: 20120301
  Transmission Date: 20120608
  Serious: Yes (Death, Hospitalization)
  Sender: FDA-Public Use
  Company Number: PHHY2012JP018195

PATIENT
  Age: 75 Year
  Sex: Male

DRUGS (7)
  1. URINORM [Concomitant]
     Dosage: 1 DF, UNK
     Route: 048
  2. NESINA [Concomitant]
     Dosage: 1 DF, UNK
     Route: 048
  3. URALYT-U [Concomitant]
     Route: 048
  4. GOSHAJINKIGAN [Concomitant]
     Dosage: 5 G, UNK
     Route: 048
  5. NICHISTATE [Concomitant]
     Dosage: 1 DF, UNK
     Route: 048
  6. RIVASTIGMINE [Suspect]
     Indication: DEMENTIA ALZHEIMER'S TYPE
     Dosage: 4.5 MG, UNK
     Route: 062
     Dates: start: 20120210, end: 20120223
  7. CALBLOCK [Concomitant]
     Dosage: 16 MG, UNK
     Route: 048

REACTIONS (7)
  - INFLUENZA [None]
  - DEHYDRATION [None]
  - NAUSEA [None]
  - HEADACHE [None]
  - CARDIO-RESPIRATORY ARREST [None]
  - ISCHAEMIA [None]
  - PYREXIA [None]
